FAERS Safety Report 8506188-5 (Version None)
Quarter: 2012Q3

REPORT INFORMATION
  Report Type: 
  Country: None (occurrence: None)
  Receive Date: 20120712
  Receipt Date: 20120702
  Transmission Date: 20120928
  Serious: Yes (Other)
  Sender: FDA-Public Use
  Company Number: CA-ELI_LILLY_AND_COMPANY-CA201207001099

PATIENT
  Age: 72 Year
  Sex: Female

DRUGS (23)
  1. BETADERM [Concomitant]
     Route: 061
  2. RHO-NITRO PUMPSPRAY [Concomitant]
  3. LESCOL [Concomitant]
  4. AMLODIPINE [Concomitant]
  5. D-TABS [Concomitant]
  6. LORAZEPAM [Concomitant]
  7. ERYTHROMYCIN [Concomitant]
     Route: 061
  8. ACETAMINOPHEN [Concomitant]
  9. PANTOPRAZOLE SODIUM [Concomitant]
  10. METFORMIN HCL [Concomitant]
  11. RIVASA [Concomitant]
  12. MAGNESIUM SULFATE [Concomitant]
  13. RAMIPRIL [Concomitant]
  14. DOCUSATE SODIUM [Concomitant]
  15. VITAMIN B-12 [Concomitant]
  16. COUMADIN [Concomitant]
  17. PAROXETINE [Concomitant]
  18. GABAPENTIN [Concomitant]
  19. FORTEO [Suspect]
     Indication: OSTEOPOROSIS
     Dosage: 20 UG, UNK
     Route: 058
     Dates: start: 20120321
  20. NOVOLIN N [Concomitant]
     Dosage: 10 U, UNK
     Route: 058
  21. METOPROLOL TARTRATE [Concomitant]
  22. LASIX [Concomitant]
  23. CALCIUM [Concomitant]

REACTIONS (2)
  - HIP SURGERY [None]
  - POSTOPERATIVE WOUND INFECTION [None]
